FAERS Safety Report 7655451-9 (Version None)
Quarter: 2011Q3

REPORT INFORMATION
  Report Type: 
  Country: None (occurrence: None)
  Receive Date: 20110804
  Receipt Date: 20110727
  Transmission Date: 20111222
  Serious: No
  Sender: FDA-Public Use
  Company Number: US-PFIZER INC-2011171330

PATIENT
  Sex: Female

DRUGS (3)
  1. DAYPRO [Suspect]
     Indication: ARTHRITIS
     Dosage: 600 MG, 2X/DAY
     Dates: end: 20110701
  2. DAYPRO [Suspect]
     Dosage: UNK
     Dates: end: 20110701
  3. ELAVIL [Concomitant]
     Indication: MYALGIA
     Dosage: 40 MG, DAILY

REACTIONS (4)
  - GAIT DISTURBANCE [None]
  - MUSCULOSKELETAL PAIN [None]
  - BACK PAIN [None]
  - ARTHRALGIA [None]
